FAERS Safety Report 9217250 (Version 1)
Quarter: 2013Q2

REPORT INFORMATION
  Report Type: Report from Study
  Country: DE (occurrence: DE)
  Receive Date: 20130408
  Receipt Date: 20130408
  Transmission Date: 20140414
  Serious: No
  Sender: FDA-Public Use
  Company Number: PHHY2013DE033913

PATIENT
  Sex: Female

DRUGS (5)
  1. AMN107 [Suspect]
     Indication: CHRONIC MYELOID LEUKAEMIA
     Dosage: 600 MG, UNK
     Route: 048
     Dates: start: 20120926, end: 20121009
  2. AMN107 [Suspect]
     Dates: start: 20121010
  3. ASA [Concomitant]
     Dosage: 100 MG, UNK
     Dates: start: 1995
  4. METOPROLOL [Concomitant]
     Dosage: 2 DF, UNK
     Dates: start: 1974
  5. THYROX [Concomitant]
     Dosage: 25 MG, UNK
     Dates: start: 1974

REACTIONS (3)
  - Blood bilirubin increased [Recovered/Resolved]
  - Abdominal discomfort [Recovered/Resolved]
  - Lipase increased [Recovered/Resolved]
